FAERS Safety Report 4751201-4 (Version None)
Quarter: 2005Q3

REPORT INFORMATION
  Report Type: 
  Country: None (occurrence: None)
  Receive Date: 20050822
  Receipt Date: 20050808
  Transmission Date: 20060218
  Serious: Yes (Hospitalization)
  Sender: FDA-Public Use
  Company Number: PHNU2005DE02821

PATIENT
  Age: 88 Year
  Sex: Female
  Weight: 75.0249 kg

DRUGS (1)
  1. VISUDYNE [Suspect]
     Indication: CHOROIDAL NEOVASCULARISATION
     Dosage: 5.7 ML DAILY IV
     Route: 042
     Dates: start: 20050801, end: 20050801

REACTIONS (4)
  - BACK PAIN [None]
  - RASH [None]
  - SCAB [None]
  - TYPE IV HYPERSENSITIVITY REACTION [None]
